FAERS Safety Report 10994287 (Version 1)
Quarter: 2015Q2

REPORT INFORMATION
  Report Type: Spontaneous
  Country: IT (occurrence: IT)
  Receive Date: 20150407
  Receipt Date: 20150407
  Transmission Date: 20150821
  Serious: Yes (Other)
  Sender: FDA-Public Use
  Company Number: IT-MYLANLABS-2015M1010959

PATIENT

DRUGS (2)
  1. LEVOTHYROXINE SODIUM. [Interacting]
     Active Substance: LEVOTHYROXINE SODIUM
     Indication: AUTOIMMUNE THYROIDITIS
     Dosage: SINGLE EARLY MORNING DOSE, FOR THE LAST 8 YEARS
     Route: 065
  2. SEVELAMER [Suspect]
     Active Substance: SEVELAMER
     Dosage: FIRST DOSE AT 8 IN THE MORNING, FOR THE LAST 18 MONTHS
     Route: 065

REACTIONS (2)
  - Drug interaction [Recovering/Resolving]
  - Hypothyroidism [Recovering/Resolving]
